FAERS Safety Report 6223364-5 (Version None)
Quarter: 2009Q2

REPORT INFORMATION
  Report Type: 
  Country: None (occurrence: None)
  Receive Date: 20090611
  Receipt Date: 20090529
  Transmission Date: 20091009
  Serious: Yes (Hospitalization)
  Sender: FDA-Public Use
  Company Number: US-ELI_LILLY_AND_COMPANY-US200905006018

PATIENT
  Sex: Female

DRUGS (7)
  1. FORTEO [Suspect]
     Dosage: 20 D/F, DAILY (1/D)
  2. ASPIRIN [Concomitant]
  3. NEXIUM [Concomitant]
  4. ZOCOR [Concomitant]
  5. DATRIL [Concomitant]
  6. GLIPIZIDE [Concomitant]
  7. BENADRYL [Concomitant]

REACTIONS (3)
  - FALL [None]
  - FATIGUE [None]
  - ROTATOR CUFF REPAIR [None]
